FAERS Safety Report 24075353 (Version 3)
Quarter: 2024Q4

REPORT INFORMATION
  Report Type: Report from Study
  Country: FR (occurrence: FR)
  Receive Date: 20240710
  Receipt Date: 20241112
  Transmission Date: 20250114
  Serious: Yes (Other)
  Sender: ALEXION PHARMACEUTICALS
  Company Number: 2024A128915

PATIENT
  Age: 55 Year
  Weight: 110 kg

DRUGS (6)
  1. DURVALUMAB [Suspect]
     Active Substance: DURVALUMAB
     Indication: HER2 positive biliary tract cancer
     Dosage: 1500 MILLIGRAM, Q3W
  2. DURVALUMAB [Suspect]
     Active Substance: DURVALUMAB
     Dosage: 1500 MILLIGRAM, Q3W
  3. DURVALUMAB [Suspect]
     Active Substance: DURVALUMAB
     Dosage: 1500 MILLIGRAM, Q3W
  4. GEMCITABINE CISPLATIN [Concomitant]
     Indication: HER2 positive biliary tract cancer
     Route: 065
  5. GEMCITABINE CISPLATIN [Concomitant]
     Dosage: UNK
     Route: 065
  6. GEMCITABINE CISPLATIN [Concomitant]
     Dosage: UNK
     Route: 065

REACTIONS (4)
  - Thrombocytopenia [Unknown]
  - Toxicity to various agents [Unknown]
  - Rash [Recovering/Resolving]
  - Pruritus [Recovering/Resolving]
